FAERS Safety Report 5423645-9 (Version None)
Quarter: 2007Q3

REPORT INFORMATION
  Report Type: 
  Country: None (occurrence: None)
  Receive Date: 20070823
  Receipt Date: 20070816
  Transmission Date: 20080115
  Serious: Yes (Congenital Anomaly)
  Sender: FDA-Public Use
  Company Number: A0644331A

PATIENT
  Sex: Female
  Weight: 2.6 kg

DRUGS (3)
  1. RETROVIR [Suspect]
     Dosage: 600MG PER DAY
  2. KALETRA [Concomitant]
     Dosage: 4TABS PER DAY
  3. DIDANOSINE [Concomitant]
     Dosage: 400MG PER DAY

REACTIONS (7)
  - ATRIOVENTRICULAR BLOCK COMPLETE [None]
  - COARCTATION OF THE AORTA [None]
  - DRUG EXPOSURE DURING PREGNANCY [None]
  - HEAT RASH [None]
  - METABOLIC ACIDOSIS [None]
  - PATENT DUCTUS ARTERIOSUS [None]
  - VENTRICULAR SEPTAL DEFECT [None]
